FAERS Safety Report 11280210 (Version 1)
Quarter: 2015Q3

REPORT INFORMATION
  Report Type: Spontaneous
  Country: US (occurrence: US)
  Receive Date: 20150717
  Receipt Date: 20150717
  Transmission Date: 20151125
  Serious: Yes (Other)
  Sender: FDA-Public Use
  Company Number: US-JNJFOC-20121107761

PATIENT

DRUGS (4)
  1. 2-CDA [Suspect]
     Active Substance: CLADRIBINE
     Indication: MANTLE CELL LYMPHOMA
     Dosage: OVER 2 HOURS, ON DAYS 1 THROUGH 5 EVERY 28 DAYS
     Route: 042
  2. RITUXIMAB [Suspect]
     Active Substance: RITUXIMAB
     Indication: MANTLE CELL LYMPHOMA
     Dosage: ON DAY 1 OF EACH CYCLE
     Route: 042
  3. FILGRASTIM [Concomitant]
     Active Substance: FILGRASTIM
     Indication: PROPHYLAXIS
     Dosage: ON DAYS 6 THROUGH 15
     Route: 058
  4. PEGFILGRASTIM [Concomitant]
     Active Substance: PEGFILGRASTIM
     Indication: PROPHYLAXIS
     Dosage: ON DAY 6
     Route: 058

REACTIONS (1)
  - Mantle cell lymphoma [Unknown]
